FAERS Safety Report 25921020 (Version 1)
Quarter: 2025Q4

REPORT INFORMATION
  Report Type: Spontaneous
  Country: EU (occurrence: EU)
  Receive Date: 20251014
  Receipt Date: 20251014
  Transmission Date: 20260118
  Serious: Yes (Other)
  Sender: VERTEX
  Company Number: EU-VERTEX PHARMACEUTICALS-2025-016730

PATIENT

DRUGS (1)
  1. IVACAFTOR [Suspect]
     Active Substance: IVACAFTOR
     Indication: Cystic fibrosis
     Dosage: UNK
     Route: 048

REACTIONS (3)
  - Lung transplant [Unknown]
  - Pulmonary hypertension [Unknown]
  - Haemoptysis [Unknown]
